FAERS Safety Report 5302123-1 (Version None)
Quarter: 2007Q2

REPORT INFORMATION
  Report Type: 
  Country: None (occurrence: None)
  Receive Date: 20070419
  Receipt Date: 20070410
  Transmission Date: 20071010
  Serious: Yes (Other)
  Sender: FDA-Public Use
  Company Number: GB-GLAXOSMITHKLINE-B0466714A

PATIENT
  Age: 34 Year
  Sex: Female

DRUGS (4)
  1. AUGMENTIN '125' [Suspect]
     Indication: PROPHYLAXIS
     Route: 042
  2. DICLOFENAC [Concomitant]
  3. ENOXAPARIN SODIUM [Concomitant]
  4. GRANISETRON [Concomitant]

REACTIONS (9)
  - ACUTE GENERALISED EXANTHEMATOUS PUSTULOSIS [None]
  - ALLERGY TO METALS [None]
  - DRUG HYPERSENSITIVITY [None]
  - ERYTHEMA [None]
  - MALAISE [None]
  - OEDEMA [None]
  - PYREXIA [None]
  - SKIN INFLAMMATION [None]
  - TACHYCARDIA [None]
